FAERS Safety Report 5977536-5 (Version None)
Quarter: 2008Q4

REPORT INFORMATION
  Report Type: 
  Country: None (occurrence: None)
  Receive Date: 20081201
  Receipt Date: 20081201
  Transmission Date: 20090506
  Serious: No
  Sender: FDA-Public Use
  Company Number: None

PATIENT
  Age: 78 Year
  Sex: Male
  Weight: 92.9874 kg

DRUGS (1)
  1. AVODART [Suspect]
     Indication: PROSTATOMEGALY
     Dosage: ONE CAPSULE DAILY
     Dates: start: 20080503, end: 20080808

REACTIONS (4)
  - ARTHRALGIA [None]
  - MOVEMENT DISORDER [None]
  - PAIN [None]
  - PAIN IN EXTREMITY [None]
